FAERS Safety Report 21124831 (Version 1)
Quarter: 2022Q3

REPORT INFORMATION
  Report Type: Spontaneous
  Country: US (occurrence: None)
  Receive Date: 20220723
  Receipt Date: 20220723
  Transmission Date: 20221027
  Serious: Yes (Disabling)
  Sender: FDA-Public Use
  Company Number: None

PATIENT
  Age: 68 Year
  Sex: Female
  Weight: 72.9 kg

DRUGS (13)
  1. PAXLOVID [Suspect]
     Active Substance: NIRMATRELVIR\RITONAVIR
     Indication: COVID-19
     Dates: start: 20220709, end: 20220714
  2. DULOXETINE [Concomitant]
     Active Substance: DULOXETINE
  3. METOPROLOL [Concomitant]
     Active Substance: METOPROLOL
  4. FAMOTIDINE [Concomitant]
     Active Substance: FAMOTIDINE
  5. TOPERIMATE [Concomitant]
  6. TRAZODONE [Concomitant]
     Active Substance: TRAZODONE HYDROCHLORIDE
  7. ATORVASTATIN [Concomitant]
     Active Substance: ATORVASTATIN
  8. FLAX SEED OIL [Concomitant]
  9. BIOTIN [Concomitant]
     Active Substance: BIOTIN
  10. GLUCOSAMINE CHONDROITIN [Concomitant]
  11. MULTIVITAMIN [Concomitant]
  12. MAGNESIUM [Concomitant]
  13. CALCIUM [Concomitant]

REACTIONS (6)
  - Nausea [None]
  - Product after taste [None]
  - Upper respiratory tract infection [None]
  - Nasopharyngitis [None]
  - Rebound effect [None]
  - SARS-CoV-2 test positive [None]

NARRATIVE: CASE EVENT DATE: 20220718
